FAERS Safety Report 4815991-4 (Version None)
Quarter: 2005Q4

REPORT INFORMATION
  Report Type: 
  Country: None (occurrence: None)
  Receive Date: 20051026
  Receipt Date: 20051014
  Transmission Date: 20060501
  Serious: Yes (Disabling, Other)
  Sender: FDA-Public Use
  Company Number: 2005042471

PATIENT
  Age: 69 Year
  Sex: Female
  Weight: 58.0604 kg

DRUGS (9)
  1. NEURONTIN [Suspect]
     Indication: ENDOLYMPHATIC HYDROPS
     Dosage: 300 MG (100 MG, 3 IN 1 D), ORAL
     Route: 048
     Dates: start: 20010801, end: 20050225
  2. NEURONTIN [Suspect]
     Indication: MENIERE'S DISEASE
     Dosage: 300 MG (100 MG, 3 IN 1 D), ORAL
     Route: 048
     Dates: start: 20010801, end: 20050225
  3. SYNTHROID [Concomitant]
  4. HYDROCHLOROTHIAZIDE/TRIAMTERENE (HYDROCHLOROTHIAZIDE, TRIAMTERENE) [Concomitant]
  5. PREMARIN [Concomitant]
  6. ALLEGRA [Concomitant]
  7. VALIUM [Concomitant]
  8. KLONOPIN [Concomitant]
  9. MECLIZINE [Concomitant]

REACTIONS (11)
  - ACTIVITIES OF DAILY LIVING IMPAIRED [None]
  - ANXIETY [None]
  - DEAFNESS NEUROSENSORY [None]
  - DEPRESSION [None]
  - DRUG INEFFECTIVE [None]
  - EAR OPERATION [None]
  - FEAR [None]
  - HEADACHE [None]
  - INSOMNIA [None]
  - PHARMACEUTICAL PRODUCT COMPLAINT [None]
  - STRESS [None]
